FAERS Safety Report 11097576 (Version 1)
Quarter: 2015Q2

REPORT INFORMATION
  Report Type: Spontaneous
  Country: US (occurrence: None)
  Receive Date: 20150507
  Receipt Date: 20150507
  Transmission Date: 20150821
  Serious: Yes (Other)
  Sender: FDA-Public Use
  Company Number: None

PATIENT
  Age: 58 Year
  Sex: Female
  Weight: 89.81 kg

DRUGS (2)
  1. ALISERTIB [Suspect]
     Active Substance: ALISERTIB
     Indication: DISEASE RECURRENCE
     Dosage: 50MG BID PO D1-7 Q21D
     Route: 048
     Dates: start: 20150406, end: 20150412
  2. ALISERTIB [Suspect]
     Active Substance: ALISERTIB
     Indication: GLIOMA
     Dosage: 50MG BID PO D1-7 Q21D
     Route: 048
     Dates: start: 20150406, end: 20150412

REACTIONS (2)
  - Nausea [None]
  - Alopecia [None]

NARRATIVE: CASE EVENT DATE: 20150416
